FAERS Safety Report 17349045 (Version 1)
Quarter: 2020Q1

REPORT INFORMATION
  Report Type: Spontaneous
  Country: US (occurrence: US)
  Receive Date: 20200130
  Receipt Date: 20200130
  Transmission Date: 20200409
  Serious: No
  Sender: FDA-Public Use
  Company Number: US-SA-2020SA023685

PATIENT
  Age: 73 Year
  Sex: Male

DRUGS (1)
  1. TOUJEO [Suspect]
     Active Substance: INSULIN GLARGINE
     Dosage: 65-67 UNITS 2 TIMES DAILY WITH A MAXIMUM DAILY DOSE OF 180 UNITS, BID
     Route: 065

REACTIONS (1)
  - Product use issue [Unknown]
